FAERS Safety Report 4457795-0 (Version None)
Quarter: 2004Q3

REPORT INFORMATION
  Report Type: 
  Country: None (occurrence: None)
  Receive Date: 20040917
  Receipt Date: 20040209
  Transmission Date: 20050211
  Serious: Yes (Other)
  Sender: FDA-Public Use
  Company Number: NSADSS2002034605

PATIENT
  Age: 32 Year
  Sex: Female

DRUGS (3)
  1. TOPAMAX [Suspect]
     Indication: BIPOLAR DISORDER
     Dosage: 25 MG, 2 IN 1 DAY, ORAL; 50 MG, 2 IN 1 DAY, ORAL
     Route: 048
     Dates: start: 20020623, end: 20020629
  2. TOPAMAX [Suspect]
     Indication: BIPOLAR DISORDER
     Dosage: 25 MG, 2 IN 1 DAY, ORAL; 50 MG, 2 IN 1 DAY, ORAL
     Route: 048
     Dates: start: 20020630, end: 20020630
  3. SEROQUEL [Concomitant]

REACTIONS (2)
  - ANGLE CLOSURE GLAUCOMA [None]
  - MYOPIA [None]
